FAERS Safety Report 7941578-0 (Version None)
Quarter: 2011Q4

REPORT INFORMATION
  Report Type: 
  Country: None (occurrence: None)
  Receive Date: 20111128
  Receipt Date: 20111117
  Transmission Date: 20120403
  Serious: Yes (Other)
  Sender: FDA-Public Use
  Company Number: US-CELGENEUS-163-21880-11031773

PATIENT
  Sex: Female
  Weight: 78.088 kg

DRUGS (6)
  1. REVLIMID [Suspect]
     Indication: MULTIPLE MYELOMA
     Dosage: 10 MILLIGRAM
     Route: 048
     Dates: start: 20100901
  2. REVLIMID [Suspect]
     Dosage: 20 MILLIGRAM
     Route: 048
     Dates: start: 20101022
  3. POTASSIUM CHLORIDE [Concomitant]
     Route: 065
  4. ASPIRIN [Concomitant]
     Dosage: 81 MILLIGRAM
     Route: 048
  5. NEURONTIN [Concomitant]
     Dosage: 300 MILLIGRAM
     Route: 048
  6. DEXAMETHASONE [Concomitant]
     Dosage: 40 MILLIGRAM
     Route: 048
     Dates: start: 20100901

REACTIONS (6)
  - LUNG NEOPLASM [None]
  - UPPER RESPIRATORY TRACT INFECTION [None]
  - LIGHT CHAIN ANALYSIS INCREASED [None]
  - MONOCLONAL IMMUNOGLOBULIN PRESENT [None]
  - PROTEIN URINE PRESENT [None]
  - MALAISE [None]
